FAERS Safety Report 10005419 (Version 1)
Quarter: 2014Q1

REPORT INFORMATION
  Report Type: Spontaneous
  Country: US (occurrence: US)
  Receive Date: 20140313
  Receipt Date: 20140313
  Transmission Date: 20141002
  Serious: No
  Sender: FDA-Public Use
  Company Number: US-BIOGENIDEC-2014BI023225

PATIENT
  Sex: Female

DRUGS (5)
  1. AVONEX [Suspect]
     Indication: MULTIPLE SCLEROSIS
     Route: 030
     Dates: start: 20080128
  2. ADVAIR DISKUS [Concomitant]
  3. LISINOPRIL [Concomitant]
  4. OXYTROL [Concomitant]
  5. XALATAN [Concomitant]

REACTIONS (1)
  - Injection site haemorrhage [Unknown]
